FAERS Safety Report 21879330 (Version 1)
Quarter: 2023Q1

REPORT INFORMATION
  Report Type: Spontaneous
  Country: US (occurrence: US)
  Receive Date: 20230118
  Receipt Date: 20230118
  Transmission Date: 20230418
  Serious: Yes (Death, Hospitalization)
  Sender: FDA-Public Use
  Company Number: US-BAYER-2023A002786

PATIENT
  Age: 42 Year
  Sex: Male

DRUGS (1)
  1. ASPIRIN [Suspect]
     Active Substance: ASPIRIN
     Dosage: INGESTED 1500 TABLETS OF 325 MG ASPIRIN AT 2000 THE NIGHT BEFORE
     Route: 048

REACTIONS (5)
  - Toxicity to various agents [Fatal]
  - Intentional overdose [Fatal]
  - Seizure [Fatal]
  - Ventricular tachycardia [Fatal]
  - Vomiting [Fatal]
